FAERS Safety Report 8260784-1 (Version None)
Quarter: 2012Q2

REPORT INFORMATION
  Report Type: 
  Country: None (occurrence: None)
  Receive Date: 20120405
  Receipt Date: 20120330
  Transmission Date: 20120825
  Serious: No
  Sender: FDA-Public Use
  Company Number: US-BIOGENIDEC-2012BI011294

PATIENT
  Sex: Female

DRUGS (1)
  1. AVONEX [Suspect]
     Indication: MULTIPLE SCLEROSIS
     Route: 030
     Dates: start: 20010119

REACTIONS (8)
  - CRYING [None]
  - EATING DISORDER [None]
  - BALANCE DISORDER [None]
  - SEASONAL ALLERGY [None]
  - HEARING IMPAIRED [None]
  - OEDEMA MOUTH [None]
  - LIP SWELLING [None]
  - LIP HAEMORRHAGE [None]
